FAERS Safety Report 19795186 (Version 1)
Quarter: 2021Q3

REPORT INFORMATION
  Report Type: Spontaneous
  Country: US (occurrence: US)
  Receive Date: 20210903
  Receipt Date: 20210903
  Transmission Date: 20211014
  Serious: Yes (Hospitalization)
  Sender: FDA-Public Use
  Company Number: None

PATIENT
  Age: 51 Year
  Sex: Female

DRUGS (6)
  1. PROMACTA [Suspect]
     Active Substance: ELTROMBOPAG OLAMINE
     Indication: SOFT TISSUE SARCOMA
     Route: 048
     Dates: start: 20210722
  2. NEUPOGEN [Suspect]
     Active Substance: FILGRASTIM
     Indication: NEOPLASM MALIGNANT
     Route: 058
     Dates: start: 20210724
  3. PROMACTA [Suspect]
     Active Substance: ELTROMBOPAG OLAMINE
     Indication: NEOPLASM MALIGNANT
     Route: 048
     Dates: start: 20210722
  4. PROMACTA [Suspect]
     Active Substance: ELTROMBOPAG OLAMINE
     Indication: MALIGNANT CONNECTIVE TISSUE NEOPLASM
     Route: 048
     Dates: start: 20210722
  5. NEUPOGEN [Suspect]
     Active Substance: FILGRASTIM
     Indication: MALIGNANT CONNECTIVE TISSUE NEOPLASM
     Route: 058
     Dates: start: 20210724
  6. NEUPOGEN [Suspect]
     Active Substance: FILGRASTIM
     Indication: SOFT TISSUE SARCOMA
     Route: 058
     Dates: start: 20210724

REACTIONS (2)
  - Neutropenia [None]
  - Pyrexia [None]

NARRATIVE: CASE EVENT DATE: 20210825
